FAERS Safety Report 24114779 (Version 2)
Quarter: 2024Q3

REPORT INFORMATION
  Report Type: Spontaneous
  Country: PT (occurrence: PT)
  Receive Date: 20240721
  Receipt Date: 20240826
  Transmission Date: 20241017
  Serious: Yes (Other)
  Sender: BAXTER
  Company Number: None

PATIENT
  Age: 62 Year
  Sex: Female
  Weight: 75 kg

DRUGS (1)
  1. LIDOCAINE [Suspect]
     Active Substance: LIDOCAINE
     Indication: Local anaesthesia
     Dosage: DOSAGE TEXT: 15 ML, 1 TOTAL, STRENGTH NAME: 20 MG/ML, DOSAGE FORM: INJECTABLE SOLUTION
     Route: 023
     Dates: start: 20240606, end: 20240606

REACTIONS (1)
  - Erythema [Recovering/Resolving]

NARRATIVE: CASE EVENT DATE: 20240606
